FAERS Safety Report 13562750 (Version 2)
Quarter: 2017Q2

REPORT INFORMATION
  Report Type: Spontaneous
  Country: US (occurrence: US)
  Receive Date: 20170519
  Receipt Date: 20170602
  Transmission Date: 20170830
  Serious: Yes (Other)
  Sender: FDA-Public Use
  Company Number: US-AMGEN-USASP2017074683

PATIENT
  Age: 62 Year
  Sex: Male
  Weight: 88 kg

DRUGS (2)
  1. IMLYGIC [Suspect]
     Active Substance: TALIMOGENE LAHERPAREPVEC
     Indication: MALIGNANT MELANOMA
     Dosage: 1 MILLION UNIT (106 VIAL)
     Route: 026
     Dates: end: 2016
  2. KEYTRUDA [Concomitant]
     Active Substance: PEMBROLIZUMAB
     Dosage: UNK

REACTIONS (2)
  - Refusal of treatment by patient [Unknown]
  - Melanoma recurrent [Unknown]

NARRATIVE: CASE EVENT DATE: 201606
